FAERS Safety Report 4375382-X (Version None)
Quarter: 2004Q2

REPORT INFORMATION
  Report Type: 
  Country: None (occurrence: None)
  Receive Date: 20040607
  Receipt Date: 20030925
  Transmission Date: 20050107
  Serious: Yes (Other)
  Sender: FDA-Public Use
  Company Number: 347821

PATIENT
  Age: 26 Year
  Sex: Female
  Weight: 53.1 kg

DRUGS (1)
  1. ACCUTANE [Suspect]
     Indication: ACNE CYSTIC
     Dosage: 50 MG DAILY ORAL
     Route: 048
     Dates: start: 20020829, end: 20021127

REACTIONS (3)
  - DEPRESSION [None]
  - LETHARGY [None]
  - MOOD ALTERED [None]
